FAERS Safety Report 17536245 (Version 2)
Quarter: 2020Q1

REPORT INFORMATION
  Report Type: Report from Study
  Country: US (occurrence: US)
  Receive Date: 20200313
  Receipt Date: 20200316
  Transmission Date: 20200409
  Serious: Yes (Hospitalization)
  Sender: FDA-Public Use
  Company Number: US-ROCHE-2220994

PATIENT
  Sex: Female
  Weight: 71.28 kg

DRUGS (3)
  1. OCREVUS [Suspect]
     Active Substance: OCRELIZUMAB
     Indication: RELAPSING-REMITTING MULTIPLE SCLEROSIS
     Route: 042
     Dates: start: 20171108
  2. OCREVUS [Suspect]
     Active Substance: OCRELIZUMAB
     Route: 042
     Dates: start: 201705
  3. OCREVUS [Suspect]
     Active Substance: OCRELIZUMAB
     Route: 042
     Dates: start: 20171109

REACTIONS (6)
  - Ear infection [Not Recovered/Not Resolved]
  - Sensory loss [Unknown]
  - Influenza [Not Recovered/Not Resolved]
  - Therapeutic response shortened [Unknown]
  - Fall [Unknown]
  - Neck pain [Not Recovered/Not Resolved]
